FAERS Safety Report 10286282 (Version 1)
Quarter: 2014Q3

REPORT INFORMATION
  Report Type: Report from Study
  Country: GB (occurrence: GB)
  Receive Date: 20140709
  Receipt Date: 20140709
  Transmission Date: 20150326
  Serious: Yes (Other)
  Sender: FDA-Public Use
  Company Number: GB-ASTRAZENECA-2014SE47682

PATIENT

DRUGS (2)
  1. SEDATIVE AGENTS [Concomitant]
     Indication: SEDATION
  2. PROPOFOL. [Suspect]
     Active Substance: PROPOFOL
     Indication: SEDATION
     Route: 042

REACTIONS (2)
  - Electrocardiogram abnormal [Unknown]
  - Propofol infusion syndrome [Unknown]
